FAERS Safety Report 15711212 (Version 1)
Quarter: 2018Q4

REPORT INFORMATION
  Report Type: Spontaneous
  Country: GB (occurrence: GB)
  Receive Date: 20181211
  Receipt Date: 20181211
  Transmission Date: 20190205
  Serious: Yes (Other)
  Sender: FDA-Public Use
  Company Number: GB-DSJP-DSE-2018-152271

PATIENT

DRUGS (1)
  1. EDOXABAN [Suspect]
     Active Substance: EDOXABAN TOSYLATE
     Indication: PULMONARY EMBOLISM
     Route: 048
     Dates: start: 20180907, end: 20181114

REACTIONS (3)
  - Hyperventilation [Recovering/Resolving]
  - Diarrhoea [Recovering/Resolving]
  - Paraesthesia [Recovering/Resolving]

NARRATIVE: CASE EVENT DATE: 20180907
